FAERS Safety Report 23252016 (Version 4)
Quarter: 2024Q2

REPORT INFORMATION
  Report Type: Report from Study
  Country: US (occurrence: US)
  Receive Date: 20231201
  Receipt Date: 20240423
  Transmission Date: 20240716
  Serious: Yes (Hospitalization)
  Sender: FDA-Public Use
  Company Number: US-SA-SAC20231128000462

PATIENT
  Age: 51 Year
  Sex: Male

DRUGS (3)
  1. BELUMOSUDIL MESYLATE [Suspect]
     Active Substance: BELUMOSUDIL MESYLATE
     Indication: Acute lymphocytic leukaemia
     Dosage: 200 MG, BID
     Route: 048
     Dates: start: 20231023
  2. BELUMOSUDIL MESYLATE [Suspect]
     Active Substance: BELUMOSUDIL MESYLATE
     Indication: Chronic graft versus host disease
     Dosage: 200 MG, BID
     Route: 048
     Dates: start: 20231103
  3. BELUMOSUDIL MESYLATE [Suspect]
     Active Substance: BELUMOSUDIL MESYLATE
     Dosage: 200 MG, BID
     Route: 048
     Dates: start: 20231121

REACTIONS (7)
  - Hypersensitivity [Unknown]
  - Asthenia [Unknown]
  - Mobility decreased [Unknown]
  - Platelet count decreased [Unknown]
  - Peripheral swelling [Unknown]
  - Product use in unapproved indication [Unknown]
  - Inappropriate schedule of product administration [Unknown]

NARRATIVE: CASE EVENT DATE: 20230101
